FAERS Safety Report 25325364 (Version 7)
Quarter: 2025Q3

REPORT INFORMATION
  Report Type: Spontaneous
  Country: CA (occurrence: CA)
  Receive Date: 20250516
  Receipt Date: 20250924
  Transmission Date: 20251021
  Serious: Yes (Other)
  Sender: PFIZER
  Company Number: CA-PFIZER INC-PV202500025659

PATIENT
  Age: 74 Year
  Sex: Male
  Weight: 67.5 kg

DRUGS (4)
  1. RUXIENCE [Suspect]
     Active Substance: RITUXIMAB-PVVR
     Indication: Follicular lymphoma refractory
     Dosage: 375 MG/M2, WEEKLY (700 MG) 4 DOSES X 5 MONTHS (6 MONTHS TOTAL RX)
     Route: 042
     Dates: start: 20250310
  2. RUXIENCE [Suspect]
     Active Substance: RITUXIMAB-PVVR
     Dosage: 650 MG, WEEKLY (X4 DOSE, THEN MONTHLY (375MG/M2 (OF 10 MG/ML)
     Route: 042
     Dates: start: 20250630
  3. LENALIDOMIDE [Concomitant]
     Active Substance: LENALIDOMIDE
     Indication: Follicular lymphoma
  4. LENALIDOMIDE [Concomitant]
     Active Substance: LENALIDOMIDE

REACTIONS (2)
  - Hypercalcaemia [Unknown]
  - Off label use [Unknown]

NARRATIVE: CASE EVENT DATE: 20250310
